FAERS Safety Report 5915440-9 (Version None)
Quarter: 2008Q4

REPORT INFORMATION
  Report Type: 
  Country: None (occurrence: None)
  Receive Date: 20081010
  Receipt Date: 20081001
  Transmission Date: 20090506
  Serious: Yes (Disabling)
  Sender: FDA-Public Use
  Company Number: GB-ELI_LILLY_AND_COMPANY-GB200806002959

PATIENT
  Sex: Male
  Weight: 160 kg

DRUGS (8)
  1. HUMALOG [Suspect]
     Indication: DIABETES MELLITUS
     Dosage: 3 ML, UNK
     Route: 058
  2. LOSARTAN [Concomitant]
     Dosage: 100 MG, UNK
  3. BENDROFLUAZIDE [Concomitant]
     Dosage: 2.5 MG, UNK
  4. TRAMADOL HCL [Concomitant]
     Dosage: UNK, AS NEEDED
  5. INSULIN GLARGINE [Concomitant]
     Dosage: 20 UNK, UNK
  6. BEZAFIBRATE [Concomitant]
     Dosage: 400 MG, UNK
  7. DEXTROSE [Concomitant]
  8. AMITRIPTYLINE HYDROCHLORIDE [Concomitant]
     Dosage: 1 D/F, AS NEEDED

REACTIONS (13)
  - ANOREXIA [None]
  - APATHY [None]
  - BLOOD GLUCOSE INCREASED [None]
  - DISTURBANCE IN ATTENTION [None]
  - DYSGEUSIA [None]
  - EYE IRRITATION [None]
  - EYE PAIN [None]
  - HYPOAESTHESIA [None]
  - LETHARGY [None]
  - RENAL PAIN [None]
  - SLUGGISHNESS [None]
  - SOMNOLENCE [None]
  - VISUAL IMPAIRMENT [None]
